FAERS Safety Report 20973125 (Version 1)
Quarter: 2022Q2

REPORT INFORMATION
  Report Type: Spontaneous
  Country: FR (occurrence: FR)
  Receive Date: 20220617
  Receipt Date: 20220617
  Transmission Date: 20220720
  Serious: Yes (Hospitalization)
  Sender: FDA-Public Use
  Company Number: None

PATIENT
  Age: 66 Year
  Sex: Female
  Weight: 66 kg

DRUGS (13)
  1. PANTOPRAZOLE [Interacting]
     Active Substance: PANTOPRAZOLE
     Indication: Product used for unknown indication
     Dosage: THERAPY START DATE AND END DATE : NASK
     Route: 048
  2. IRBESARTAN [Interacting]
     Active Substance: IRBESARTAN
     Indication: Hypertension
     Dosage: DOSAGE NOT KNOWN, THERAPY START DATE : NASK
     Route: 048
     Dates: end: 202105
  3. HYDROCHLOROTHIAZIDE [Interacting]
     Active Substance: HYDROCHLOROTHIAZIDE
     Indication: Hypertension
     Dosage: DOSAGE NOT KNOWN , THERAPY START DATE : NASK
     Route: 048
     Dates: end: 202105
  4. FUROSEMIDE [Interacting]
     Active Substance: FUROSEMIDE
     Indication: Product used for unknown indication
     Dosage: THERAPY START DATE : NASK
     Route: 048
     Dates: end: 202105
  5. EZETIMIBE [Concomitant]
     Active Substance: EZETIMIBE
  6. CELLCEPT [Concomitant]
     Active Substance: MYCOPHENOLATE MOFETIL
     Dosage: FORM STRENGTH : 500 MG
  7. RILMENIDINE PHOSPHATE [Concomitant]
     Active Substance: RILMENIDINE PHOSPHATE
  8. TRAMADOL HYDROCHLORIDE [Concomitant]
     Active Substance: TRAMADOL HYDROCHLORIDE
  9. PRIMPERAN [Concomitant]
     Active Substance: METOCLOPRAMIDE HYDROCHLORIDE
  10. PROGRAF [Concomitant]
     Active Substance: TACROLIMUS
  11. TRAMADOL HYDROCHLORIDE [Concomitant]
     Active Substance: TRAMADOL HYDROCHLORIDE
  12. DAFALGAN [Concomitant]
     Active Substance: ACETAMINOPHEN
  13. CALCIUM POLYSTYRENE SULFONATE [Concomitant]
     Active Substance: CALCIUM POLYSTYRENE SULFONATE

REACTIONS (3)
  - Acute kidney injury [Recovered/Resolved]
  - Hyponatraemia [Recovered/Resolved]
  - Drug interaction [Unknown]

NARRATIVE: CASE EVENT DATE: 20210501
